FAERS Safety Report 5761017-8 (Version None)
Quarter: 2008Q2

REPORT INFORMATION
  Report Type: 
  Country: None (occurrence: None)
  Receive Date: 20080606
  Receipt Date: 20070628
  Transmission Date: 20081010
  Serious: No
  Sender: FDA-Public Use
  Company Number: US-ASTRAZENECA-2007UW15405

PATIENT
  Age: 3 Year
  Sex: Male
  Weight: 14.1 kg

DRUGS (1)
  1. PRILOSEC [Suspect]
     Indication: EOSINOPHILIC OESOPHAGITIS
     Route: 048
     Dates: start: 20070316

REACTIONS (1)
  - TOOTH DISCOLOURATION [None]
